FAERS Safety Report 23852628 (Version 1)
Quarter: 2024Q2

REPORT INFORMATION
  Report Type: Other
  Country: JP (occurrence: JP)
  Receive Date: 20240514
  Receipt Date: 20240514
  Transmission Date: 20240716
  Serious: Yes (Life-Threatening)
  Sender: FDA-Public Use
  Company Number: JP-B.Braun Medical Inc.-2156944

PATIENT
  Age: 48 Year
  Sex: Female

DRUGS (3)
  1. HEPARIN SODIUM IN DEXTROSE [Suspect]
     Active Substance: HEPARIN SODIUM
     Indication: Anticoagulant therapy
     Route: 042
  2. CARBOPLATIN [Suspect]
     Active Substance: CARBOPLATIN
  3. DOCETAXEL [Suspect]
     Active Substance: DOCETAXEL\DOCETAXEL ANHYDROUS

REACTIONS (1)
  - Drug ineffective [Unknown]
